FAERS Safety Report 10698840 (Version 1)
Quarter: 2015Q1

REPORT INFORMATION
  Report Type: Spontaneous
  Country: TR (occurrence: TR)
  Receive Date: 20150108
  Receipt Date: 20150108
  Transmission Date: 20150721
  Serious: Yes (Hospitalization, Other)
  Sender: FDA-Public Use
  Company Number: TR-B.I. PHARMACEUTICALS,INC./RIDGEFIELD-2015-BI-01094GD

PATIENT
  Age: 82 Year
  Sex: Female

DRUGS (3)
  1. PRADAXA [Suspect]
     Active Substance: DABIGATRAN ETEXILATE MESYLATE
     Indication: ATRIAL FIBRILLATION
  2. PRADAXA [Suspect]
     Active Substance: DABIGATRAN ETEXILATE MESYLATE
     Indication: ANTICOAGULANT THERAPY
     Dosage: 220 MG
     Route: 048
  3. PRADAXA [Suspect]
     Active Substance: DABIGATRAN ETEXILATE MESYLATE
     Indication: TRANSIENT ISCHAEMIC ATTACK

REACTIONS (6)
  - Ischaemic stroke [Recovered/Resolved]
  - Aphasia [Recovered/Resolved]
  - Syncope [Recovered/Resolved]
  - Traumatic haematoma [Recovered/Resolved]
  - Loss of consciousness [Recovered/Resolved]
  - Hemiplegia [Recovered/Resolved]
